FAERS Safety Report 9475056 (Version 1)
Quarter: 2013Q3

REPORT INFORMATION
  Report Type: Spontaneous
  Country: US (occurrence: US)
  Receive Date: 20130824
  Receipt Date: 20130824
  Transmission Date: 20140515
  Serious: No
  Sender: FDA-Public Use
  Company Number: US-B.I. PHARMACEUTICALS,INC./RIDGEFIELD-2013-BI-25679BP

PATIENT
  Age: 62 Year
  Sex: Male

DRUGS (3)
  1. COMBIVENT [Suspect]
     Indication: CHRONIC OBSTRUCTIVE PULMONARY DISEASE
     Dosage: STRENGTH: 20 MCG / 100 MCG; DAILY DOSE: 120MCG/600MCG
     Route: 055
     Dates: start: 201306
  2. ADVAIR [Concomitant]
     Route: 055
  3. LORAZEPAM [Concomitant]
     Route: 048

REACTIONS (1)
  - Drug ineffective [Not Recovered/Not Resolved]
